FAERS Safety Report 10171822 (Version 1)
Quarter: 2014Q2

REPORT INFORMATION
  Report Type: Spontaneous
  Country: FR (occurrence: FR)
  Receive Date: 20140514
  Receipt Date: 20140514
  Transmission Date: 20141212
  Serious: Yes (Other)
  Sender: FDA-Public Use
  Company Number: FR-GALDERMA-FR14001629

PATIENT
  Age: 8 Year
  Sex: Female

DRUGS (1)
  1. ROZEX (METRONIDAZOLE) [Suspect]
     Dosage: 0.75%
     Route: 061
     Dates: start: 20140406, end: 20140406

REACTIONS (4)
  - Erythema [Recovered/Resolved]
  - Medication error [Recovered/Resolved]
  - Wrong drug administered [Recovered/Resolved]
  - Dry skin [None]
